FAERS Safety Report 8306256-7 (Version None)
Quarter: 2012Q2

REPORT INFORMATION
  Report Type: 
  Country: None (occurrence: None)
  Receive Date: 20120423
  Receipt Date: 20120411
  Transmission Date: 20120825
  Serious: Yes (Other)
  Sender: FDA-Public Use
  Company Number: JP-ROCHE-1003557

PATIENT
  Sex: Male

DRUGS (4)
  1. RANIBIZUMAB [Suspect]
     Indication: AGE-RELATED MACULAR DEGENERATION
     Route: 050
     Dates: start: 20110804
  2. OXYBUPROCAINE HYDROCHLORIDE [Concomitant]
     Route: 065
     Dates: start: 20110804
  3. XYLOCAINE [Concomitant]
     Route: 065
     Dates: start: 20110804
  4. CEFMENOXIME HYDROCHLORIDE [Concomitant]
     Route: 065
     Dates: start: 20110801

REACTIONS (2)
  - CORNEAL EXFOLIATION [None]
  - EYE PAIN [None]
